FAERS Safety Report 10111364 (Version 1)
Quarter: 2014Q2

REPORT INFORMATION
  Report Type: Report from Study
  Country: BR (occurrence: BR)
  Receive Date: 20140425
  Receipt Date: 20140425
  Transmission Date: 20141212
  Serious: Yes (Hospitalization, Other)
  Sender: FDA-Public Use
  Company Number: PHHY2014BR050155

PATIENT
  Sex: Female
  Weight: 92 kg

DRUGS (8)
  1. DIOVAN [Suspect]
     Indication: HYPERTENSION
     Dosage: 1 DF (320 MG VALS), DAILY
     Route: 048
     Dates: end: 20140411
  2. CONCOR [Concomitant]
     Indication: CARDIAC DISORDER
     Dosage: UNK UKN, UNK
  3. CRESTOR [Concomitant]
     Indication: CARDIAC DISORDER
     Dosage: UNK UKN, UNK
  4. CRESTOR [Concomitant]
     Indication: HYPERTENSION
  5. CRESTOR [Concomitant]
     Indication: BLOOD CHOLESTEROL ABNORMAL
  6. ASPIRINA PREVENT [Concomitant]
     Indication: ANTICOAGULANT THERAPY
     Dosage: UNK UKN, UNK
  7. SOMALIUM [Concomitant]
     Indication: AGITATION
     Dosage: UNK UKN, UNK
  8. BENERVA [Concomitant]
     Indication: VITAMIN SUPPLEMENTATION
     Dosage: UNK UKN, UNK

REACTIONS (2)
  - Nervous system disorder [Recovered/Resolved]
  - Blood pressure increased [Recovered/Resolved]
